FAERS Safety Report 9917991 (Version 2)
Quarter: 2014Q1

REPORT INFORMATION
  Report Type: Spontaneous
  Country: US (occurrence: US)
  Receive Date: 20140222
  Receipt Date: 20140222
  Transmission Date: 20141002
  Serious: Yes (Disabling)
  Sender: FDA-Public Use
  Company Number: US-GE HEALTHCARE MEDICAL DIAGNOSTICS-OSCN-PR-0805S-0295

PATIENT
  Age: 54 Year
  Sex: Male

DRUGS (11)
  1. OMNISCAN [Suspect]
     Indication: EXOPHTHALMOS
     Route: 042
     Dates: start: 20021108, end: 20021108
  2. OMNISCAN [Suspect]
     Indication: PRODUCT USED FOR UNKNOWN INDICATION
     Route: 042
     Dates: start: 20040629, end: 20040629
  3. OMNISCAN [Suspect]
     Route: 042
     Dates: start: 20041207, end: 20041207
  4. OMNISCAN [Suspect]
     Route: 042
     Dates: start: 20050308, end: 20050308
  5. OMNISCAN [Suspect]
     Route: 042
     Dates: start: 20050720, end: 20050720
  6. OMNISCAN [Suspect]
     Route: 042
     Dates: start: 20050922, end: 20050922
  7. OMNISCAN [Suspect]
     Route: 042
     Dates: start: 20051018, end: 20051018
  8. OMNISCAN [Suspect]
     Route: 042
     Dates: start: 20060309, end: 20060309
  9. OMNISCAN [Suspect]
     Route: 042
     Dates: start: 20070201, end: 20070201
  10. OMNISCAN [Suspect]
     Route: 042
     Dates: start: 20051230, end: 20051230
  11. MULTIHANCE [Suspect]
     Indication: PRODUCT USED FOR UNKNOWN INDICATION
     Route: 042
     Dates: start: 20070201, end: 20070201

REACTIONS (1)
  - Nephrogenic systemic fibrosis [Not Recovered/Not Resolved]
